FAERS Safety Report 24988446 (Version 2)
Quarter: 2025Q1

REPORT INFORMATION
  Report Type: Spontaneous
  Country: GB (occurrence: GB)
  Receive Date: 20250220
  Receipt Date: 20250306
  Transmission Date: 20250408
  Serious: No
  Sender: JUBILANT
  Company Number: GB-JUBILANT PHARMA LTD-2025GB000141

PATIENT
  Sex: Female

DRUGS (2)
  1. VALSARTAN [Suspect]
     Active Substance: VALSARTAN
     Indication: Product used for unknown indication
     Route: 065
  2. VALSARTAN [Suspect]
     Active Substance: VALSARTAN
     Indication: Product used for unknown indication

REACTIONS (3)
  - Visual impairment [Unknown]
  - Headache [Unknown]
  - Dyspnoea [Unknown]
